FAERS Safety Report 10877642 (Version 6)
Quarter: 2015Q1

REPORT INFORMATION
  Report Type: Spontaneous
  Country: JP (occurrence: JP)
  Receive Date: 20150302
  Receipt Date: 20150330
  Transmission Date: 20150721
  Serious: Yes (Hospitalization)
  Sender: FDA-Public Use
  Company Number: JP-JNJFOC-20150218136

PATIENT
  Age: 65 Year
  Sex: Male
  Weight: 68 kg

DRUGS (6)
  1. ADOAIR [Concomitant]
     Active Substance: FLUTICASONE PROPIONATE\SALMETEROL XINAFOATE
     Indication: ASTHMA
     Dosage: 1 PUFF
     Route: 065
  2. TALION [Concomitant]
     Active Substance: BEPOTASTINE
     Indication: RHINITIS ALLERGIC
     Dosage: 1 TABLET
     Route: 048
  3. CANAGLIFLOZIN [Suspect]
     Active Substance: CANAGLIFLOZIN
     Indication: TYPE 2 DIABETES MELLITUS
     Dosage: BEFORE BREAKFAST WITH WATER
     Route: 048
     Dates: start: 20150118, end: 20150218
  4. TENELIGLIPTIN HYDROBROMIDE HYDRATE [Suspect]
     Active Substance: TENELIGLIPTIN
     Indication: TYPE 2 DIABETES MELLITUS
     Dosage: BEFORE BREAKFAST WITH WATER
     Route: 048
     Dates: start: 20140928, end: 20150218
  5. ALLOPURINOL. [Concomitant]
     Active Substance: ALLOPURINOL
     Indication: HYPERURICAEMIA
     Route: 048
  6. MONTELUKAST [Concomitant]
     Active Substance: MONTELUKAST SODIUM
     Indication: ASTHMA
     Dosage: 1 TABLET
     Route: 048

REACTIONS (2)
  - Atrial fibrillation [Recovered/Resolved]
  - Sinus node dysfunction [Recovered/Resolved]

NARRATIVE: CASE EVENT DATE: 20150216
